FAERS Safety Report 8839623 (Version 2)
Quarter: 2012Q4

REPORT INFORMATION
  Report Type: Report from Study
  Country: US (occurrence: US)
  Receive Date: 20121015
  Receipt Date: 20121119
  Transmission Date: 20130627
  Serious: No
  Sender: FDA-Public Use
  Company Number: US-JNJFOC-20121005007

PATIENT
  Age: 30 Year
  Sex: Male

DRUGS (4)
  1. INVEGA [Suspect]
     Indication: PRODUCT USED FOR UNKNOWN INDICATION
     Route: 048
  2. INVEGA SUSTENNA [Suspect]
     Indication: PRODUCT USED FOR UNKNOWN INDICATION
     Route: 030
  3. INVEGA SUSTENNA [Suspect]
     Indication: PRODUCT USED FOR UNKNOWN INDICATION
     Route: 030
  4. AMBIEN [Concomitant]
     Indication: SLEEP DISORDER
     Dosage: at bed time
     Route: 048

REACTIONS (5)
  - Swelling face [Recovered/Resolved]
  - Joint stiffness [Recovered/Resolved]
  - Adverse drug reaction [Unknown]
  - Muscle tightness [Recovered/Resolved]
  - Therapeutic response decreased [Unknown]
